FAERS Safety Report 17410021 (Version 1)
Quarter: 2020Q1

REPORT INFORMATION
  Report Type: Spontaneous
  Country: FR (occurrence: FR)
  Receive Date: 20200212
  Receipt Date: 20200212
  Transmission Date: 20200409
  Serious: Yes (Life-Threatening)
  Sender: FDA-Public Use
  Company Number: FR-PFIZER INC-2020057594

PATIENT
  Age: 21 Year
  Sex: Male
  Weight: 64 kg

DRUGS (9)
  1. LERCANIDIPINE HCL [Concomitant]
     Active Substance: LERCANIDIPINE HYDROCHLORIDE
     Dosage: UNK
  2. LEDERFOLINE [Suspect]
     Active Substance: LEUCOVORIN CALCIUM
     Indication: VITAMIN SUPPLEMENTATION
     Dosage: 25 MG, 1X/DAY
     Route: 048
     Dates: start: 20191206, end: 20191223
  3. DALACINE [Suspect]
     Active Substance: CLINDAMYCIN
     Indication: TOXOPLASMOSIS
     Dosage: 2400 MG, 1X/DAY
     Route: 048
     Dates: start: 20191206, end: 20191223
  4. DALACINE [Suspect]
     Active Substance: CLINDAMYCIN
     Indication: TOXOPLASMOSIS
     Dosage: 2400 MG, 1X/DAY
     Route: 048
     Dates: start: 20191206, end: 20191223
  5. DALACINE [Suspect]
     Active Substance: CLINDAMYCIN
     Indication: TOXOPLASMOSIS
     Dosage: 2400 MG, 1X/DAY
     Route: 048
     Dates: start: 20191206, end: 20191223
  6. MYFORTIC [Suspect]
     Active Substance: MYCOPHENOLATE SODIUM
     Indication: IMMUNOSUPPRESSION
     Dosage: 720 MG, 1X/DAY
     Route: 048
     Dates: start: 2017, end: 20191226
  7. MALOCIDE [PYRIMETHAMINE] [Suspect]
     Active Substance: PYRIMETHAMINE
     Indication: TOXOPLASMOSIS
     Dosage: 75 MG, 1X/DAY
     Route: 048
     Dates: start: 20191206, end: 20191223
  8. ENVARSUS XR [Suspect]
     Active Substance: TACROLIMUS
     Indication: IMMUNOSUPPRESSION
     Dosage: 4 MG, 1X/DAY
     Route: 048
     Dates: start: 2017
  9. CORTANCYL [Concomitant]
     Active Substance: PREDNISONE
     Dosage: UNK

REACTIONS (3)
  - Leukopenia [Recovered/Resolved]
  - Acute kidney injury [Recovered/Resolved]
  - Thrombocytopenia [Recovered/Resolved]

NARRATIVE: CASE EVENT DATE: 20191223
